FAERS Safety Report 9251360 (Version 2)
Quarter: 2014Q1

REPORT INFORMATION
  Report Type: Spontaneous
  Country: US (occurrence: None)
  Receive Date: 20130305
  Receipt Date: 20140306
  Transmission Date: 20141002
  Serious: Yes (Disabling, Other)
  Sender: FDA-Public Use
  Company Number: 163-21880-12042210

PATIENT
  Age: 60 Year
  Sex: Female

DRUGS (26)
  1. REVLIMID [Suspect]
     Indication: PLASMA CELL MYELOMA
     Dosage: 25 MG, 1 IN 1 D, PO
     Route: 048
     Dates: start: 20120323, end: 201204
  2. VELCADE [Concomitant]
  3. ARANESP (DARBEPOETIN ALFA) [Concomitant]
  4. ZOMETA (ZOLEDRONIC ACID) [Concomitant]
  5. DECADRON (DEXAMETHASONE) [Concomitant]
  6. ACYCLOVIR (ACICLOVIR) (ACICLOVIR) [Concomitant]
  7. BACTRIM [Concomitant]
  8. BETA CAROT (BETACAROTENE) [Concomitant]
  9. CALCIUM +D (OS-CAL) [Concomitant]
  10. CINNAMON (CINNAMOMUM VERUM) [Concomitant]
  11. FISH OIL (FISH OIL) [Concomitant]
  12. FOLIC ACID [Concomitant]
  13. GLUCO/CHON (GLUCOSAMINE W/CHONDROITIN SULFATE) [Concomitant]
  14. LEVOTHYROX (LEVOTHYROXINE SODIUM) [Concomitant]
  15. LUTEIN (XANTOFYL) [Concomitant]
  16. NEXIUM (ESOMEPRAZOLE) [Concomitant]
  17. NIACIN (NICOTINIC ACID) [Concomitant]
  18. OXYCODONE/APAP (OXYCODONE/APAP) [Concomitant]
  19. OXYCONTIN (OXYCODONE HYDROCHLORIDE) [Concomitant]
  20. POTASSIUM CHLORIDE [Concomitant]
  21. PRAVASTATIN [Concomitant]
  22. SUPER B [Concomitant]
  23. VIT C (RHIPS (REDOX) [Concomitant]
  24. VITAMIN A (RETINOL) [Concomitant]
  25. VITAMIN B6 (PYRIDOXINE HYDROCHLORIDE) [Concomitant]
  26. VITAMIN E (TOCOPHEROL) [Concomitant]

REACTIONS (1)
  - Rash pruritic [None]
